FAERS Safety Report 4704310-X (Version None)
Quarter: 2005Q2

REPORT INFORMATION
  Report Type: 
  Country: None (occurrence: None)
  Receive Date: 20050630
  Receipt Date: 20050624
  Transmission Date: 20051028
  Serious: Yes (Hospitalization)
  Sender: FDA-Public Use
  Company Number: 2005PK01108

PATIENT
  Age: 41 Year
  Sex: Male

DRUGS (10)
  1. SEROQUEL [Suspect]
     Route: 048
     Dates: start: 20050310
  2. SEROQUEL [Interacting]
     Route: 048
     Dates: start: 20050311
  3. VALIUM [Interacting]
     Route: 048
     Dates: start: 20050306, end: 20050309
  4. VALIUM [Interacting]
     Route: 048
     Dates: start: 20050310
  5. VALIUM [Interacting]
     Route: 048
     Dates: start: 20050311
  6. LITHIUM CARBONATE [Concomitant]
     Dosage: FOR YEARS
     Route: 048
  7. LEXOTANIL [Concomitant]
     Dosage: FOR YEARS
     Route: 048
  8. ADALAT [Concomitant]
     Route: 048
     Dates: start: 20050307
  9. NITRODERM [Concomitant]
     Route: 062
     Dates: start: 20050304
  10. METOPROLOL SUCCINATE [Concomitant]
     Route: 048
     Dates: start: 20050305, end: 20050311

REACTIONS (6)
  - BLOOD PRESSURE INCREASED [None]
  - DIZZINESS [None]
  - DRUG INTERACTION [None]
  - DRY MOUTH [None]
  - SPEECH DISORDER [None]
  - TONGUE DISORDER [None]
